FAERS Safety Report 14281632 (Version 2)
Quarter: 2017Q4

REPORT INFORMATION
  Report Type: Spontaneous
  Country: US (occurrence: US)
  Receive Date: 20171213
  Receipt Date: 20171219
  Transmission Date: 20180321
  Serious: No
  Sender: FDA-Public Use
  Company Number: US-009507513-1712USA006282

PATIENT
  Sex: Female

DRUGS (1)
  1. NUVARING [Suspect]
     Active Substance: ETHINYL ESTRADIOL\ETONOGESTREL
     Indication: CONTRACEPTION
     Dosage: 0.015/0.12, 3 WEEKS IN 1 WEEK OUT
     Route: 067
     Dates: start: 2015

REACTIONS (3)
  - Device expulsion [Not Recovered/Not Resolved]
  - Accidental underdose [Unknown]
  - Product quality issue [Unknown]
